FAERS Safety Report 4539802-X (Version None)
Quarter: 2004Q4

REPORT INFORMATION
  Report Type: 
  Country: None (occurrence: None)
  Receive Date: 20041223
  Receipt Date: 20041208
  Transmission Date: 20050328
  Serious: Yes (Other)
  Sender: FDA-Public Use
  Company Number: GBS041116034

PATIENT
  Age: 6 Year
  Sex: Male
  Weight: 29 kg

DRUGS (6)
  1. STRATTERA [Suspect]
     Indication: ATTENTION DEFICIT/HYPERACTIVITY DISORDER
     Dosage: 25 MG
     Dates: start: 20041021
  2. STRATTERA [Suspect]
     Indication: AUTISM
     Dosage: 25 MG
     Dates: start: 20041021
  3. TEGRETOL(CARBAMAZEPINE RIVOPHARM) [Concomitant]
  4. MELATONIN [Concomitant]
  5. RISPERDAL [Concomitant]
  6. FLUORIDE [Concomitant]

REACTIONS (7)
  - AGGRESSION [None]
  - CRYING [None]
  - EMOTIONAL DISORDER [None]
  - EXCESSIVE MASTURBATION [None]
  - MARKEDLY REDUCED DIETARY INTAKE [None]
  - PSYCHOMOTOR HYPERACTIVITY [None]
  - WEIGHT DECREASED [None]
